FAERS Safety Report 9263319 (Version 1)
Quarter: 2013Q2

REPORT INFORMATION
  Report Type: Spontaneous
  Country: US (occurrence: None)
  Receive Date: 20130429
  Receipt Date: 20130429
  Transmission Date: 20140414
  Serious: Yes (Other)
  Sender: FDA-Public Use
  Company Number: None

PATIENT
  Age: 62 Year
  Sex: Female
  Weight: 61.24 kg

DRUGS (2)
  1. BACLOFEN [Suspect]
     Indication: BACK PAIN
     Dosage: 120 1-4X/DAILY
  2. BACLOFEN [Suspect]
     Indication: NECK PAIN
     Dosage: 120 1-4X/DAILY

REACTIONS (7)
  - Overdose [None]
  - Vision blurred [None]
  - Dizziness [None]
  - Lethargy [None]
  - Muscular weakness [None]
  - Muscular weakness [None]
  - Paraesthesia [None]
